FAERS Safety Report 16665923 (Version 2)
Quarter: 2019Q3

REPORT INFORMATION
  Report Type: Spontaneous
  Country: US (occurrence: US)
  Receive Date: 20190804
  Receipt Date: 20190804
  Transmission Date: 20191004
  Serious: No
  Sender: FDA-Public Use
  Company Number: US-ABBVIE-19S-163-2699465-00

PATIENT
  Age: 42 Year
  Sex: Male
  Weight: 70.37 kg

DRUGS (3)
  1. DEPAKOTE [Suspect]
     Active Substance: DIVALPROEX SODIUM
     Indication: SEIZURE
     Route: 048
  2. DILANTIN [Concomitant]
     Active Substance: PHENYTOIN
     Indication: SEIZURE
  3. ZYPREXA [Concomitant]
     Active Substance: OLANZAPINE
     Indication: SEIZURE

REACTIONS (3)
  - Abnormal behaviour [Not Recovered/Not Resolved]
  - Product administration error [Unknown]
  - Product physical issue [Unknown]

NARRATIVE: CASE EVENT DATE: 20190222
